FAERS Safety Report 10017371 (Version 3)
Quarter: 2014Q2

REPORT INFORMATION
  Report Type: Report from Study
  Country: BD (occurrence: BD)
  Receive Date: 20140318
  Receipt Date: 20140402
  Transmission Date: 20141212
  Serious: Yes (Death)
  Sender: FDA-Public Use
  Company Number: PHHY2014BD032075

PATIENT
  Age: 75 Year
  Sex: Female

DRUGS (3)
  1. ACLASTA [Suspect]
     Indication: OSTEOPOROSIS
     Dosage: UNK UKN, UNK
     Route: 042
     Dates: start: 20140208
  2. CALCIUM SUPPLEMENT [Concomitant]
     Dosage: UNK
  3. SANDOCAL-D [Concomitant]
     Dosage: UNK UKN, BID
     Route: 048
     Dates: start: 20130709, end: 20140220

REACTIONS (5)
  - Death [Fatal]
  - X-ray abnormal [Unknown]
  - Ageusia [Unknown]
  - Pyrexia [Unknown]
  - Constipation [Unknown]
